FAERS Safety Report 7655828-1 (Version None)
Quarter: 2011Q3

REPORT INFORMATION
  Report Type: 
  Country: None (occurrence: None)
  Receive Date: 20110804
  Receipt Date: 20110726
  Transmission Date: 20111222
  Serious: Yes (Death, Hospitalization, Other)
  Sender: FDA-Public Use
  Company Number: US-PFIZER INC-2011174419

PATIENT
  Age: 58 Year
  Sex: Female

DRUGS (10)
  1. ARGATROBAN [Suspect]
     Dosage: 0.2 MCG/KG/MIN
     Route: 065
     Dates: start: 20070407, end: 20070408
  2. ARGATROBAN [Suspect]
     Dosage: UNK
     Route: 065
     Dates: start: 20070410
  3. FONDAPARINUX SODIUM [Suspect]
     Dosage: 10 MG, UNK
     Route: 065
     Dates: start: 20070409
  4. IMMUNOGLOBULIN HUMAN NORMAL [Concomitant]
     Indication: ANTIPHOSPHOLIPID SYNDROME
     Dosage: 500 MG/KG, UNK
     Route: 065
  5. CEFAZOLIN SODIUM [Concomitant]
     Route: 065
  6. FONDAPARINUX SODIUM [Suspect]
     Indication: PERIPHERAL ISCHAEMIA
     Dosage: 10 MG, UNK
     Route: 065
     Dates: start: 20060701
  7. WARFARIN POTASSIUM [Suspect]
     Indication: DEEP VEIN THROMBOSIS
     Dosage: 5 MG, UNK
     Route: 065
     Dates: start: 20070406
  8. ARGATROBAN [Suspect]
     Dosage: 0.1 MCG/KG/MIN
     Route: 065
     Dates: start: 20070406, end: 20070406
  9. METHYLPREDNISOLONE [Concomitant]
     Indication: ANTIPHOSPHOLIPID SYNDROME
     Dosage: 1 G, DAILY
     Route: 042
  10. ARGATROBAN [Suspect]
     Indication: DEEP VEIN THROMBOSIS
     Dosage: 0.4 MCG/KG/MIN
     Route: 065
     Dates: start: 20070406, end: 20070406

REACTIONS (4)
  - COMPARTMENT SYNDROME [None]
  - PULMONARY HAEMORRHAGE [None]
  - EVANS SYNDROME [None]
  - THROMBOSIS [None]
